FAERS Safety Report 11578579 (Version 1)
Quarter: 2015Q3

REPORT INFORMATION
  Report Type: Spontaneous
  Country: US (occurrence: US)
  Receive Date: 20150930
  Receipt Date: 20150930
  Transmission Date: 20151125
  Serious: Yes (Other)
  Sender: FDA-Public Use
  Company Number: US-LPDUSPRD-20150755

PATIENT
  Age: 43 Year
  Sex: Female

DRUGS (3)
  1. ELMIRON [Concomitant]
     Active Substance: PENTOSAN POLYSULFATE SODIUM
     Dosage: DOSE UNKNOWN
     Route: 065
  2. VENOFER [Suspect]
     Active Substance: IRON SUCROSE
     Dosage: 200 MG
     Route: 042
     Dates: start: 20150910, end: 20150910
  3. PRILOSEC [Concomitant]
     Active Substance: OMEPRAZOLE MAGNESIUM
     Dosage: DOSE UNKNOWN
     Route: 065

REACTIONS (2)
  - Off label use [Unknown]
  - Urinary tract infection [Unknown]

NARRATIVE: CASE EVENT DATE: 201509
